FAERS Safety Report 9459189 (Version 1)
Quarter: 2013Q3

REPORT INFORMATION
  Report Type: Report from Study
  Country: GB (occurrence: GB)
  Receive Date: 20130814
  Receipt Date: 20130814
  Transmission Date: 20140515
  Serious: Yes (Hospitalization)
  Sender: FDA-Public Use
  Company Number: GB-ROCHE-1260301

PATIENT
  Sex: Male
  Weight: 77 kg

DRUGS (3)
  1. RITUXIMAB [Suspect]
     Indication: RHEUMATOID ARTHRITIS
     Route: 065
     Dates: start: 20100201
  2. HYDROXYCHLOROQUINE [Concomitant]
  3. AZATHIOPRINE [Concomitant]

REACTIONS (1)
  - Cranial nerve paralysis [Unknown]
